FAERS Safety Report 9769431 (Version 1)
Quarter: 2013Q4

REPORT INFORMATION
  Report Type: Spontaneous
  Country: US (occurrence: None)
  Receive Date: 20131217
  Receipt Date: 20131217
  Transmission Date: 20140711
  Serious: Yes (Disabling, Other)
  Sender: FDA-Public Use
  Company Number: None

PATIENT
  Age: 25 Year
  Sex: Female
  Weight: 63.5 kg

DRUGS (1)
  1. MINOCIN [Suspect]
     Indication: SINUSITIS
     Route: 048
     Dates: start: 19801215, end: 19801218

REACTIONS (18)
  - Dizziness [None]
  - Asthenia [None]
  - Epistaxis [None]
  - Asthenia [None]
  - Contusion [None]
  - Skin discolouration [None]
  - Stress [None]
  - Local swelling [None]
  - Pain in extremity [None]
  - Arthritis [None]
  - Exostosis [None]
  - Pregnancy [None]
  - Maternal exposure before pregnancy [None]
  - Abortion spontaneous [None]
  - Premature baby [None]
  - Foetal placental thrombosis [None]
  - Angiopathy [None]
  - Lupus-like syndrome [None]
